FAERS Safety Report 18111127 (Version 2)
Quarter: 2020Q3

REPORT INFORMATION
  Report Type: Spontaneous
  Country: US (occurrence: US)
  Receive Date: 20200805
  Receipt Date: 20200814
  Transmission Date: 20201103
  Serious: Yes (Hospitalization, Other)
  Sender: FDA-Public Use
  Company Number: US-TEVA-2020-US-1810424

PATIENT
  Age: 11 Year
  Sex: Female
  Weight: 30 kg

DRUGS (16)
  1. VALPROIC ACID. [Suspect]
     Active Substance: VALPROIC ACID
     Dosage: FOLLOWED BY 200 MG THREE TIMES A DAY
     Route: 048
  2. ONFI [Interacting]
     Active Substance: CLOBAZAM
     Dosage: 20 MILLIGRAM DAILY; TWO DAYS LATER THE DOSE WAS AGAIN INCREASED TO 10 MG TWICE A DAY (0.7 MG/KG/DAY)
     Route: 048
  3. DIPHENHYDRAMINE. [Interacting]
     Active Substance: DIPHENHYDRAMINE
     Indication: PRODUCT USED FOR UNKNOWN INDICATION
     Route: 065
  4. GLYCOPYRROLATE. [Concomitant]
     Active Substance: GLYCOPYRROLATE
     Dosage: SCHEDULED 1.5 MG AT NOON AS NEEDED
     Route: 048
  5. ONFI [Interacting]
     Active Substance: CLOBAZAM
     Indication: SEIZURE
     Dosage: 10 MILLIGRAM DAILY; 0.3 MG/KG/DAY
     Route: 048
  6. ONFI [Interacting]
     Active Substance: CLOBAZAM
     Dosage: 15 MILLIGRAM DAILY; DOSE INCREASED ON INCREASED THE FOLLOWING DAY (0.5 MG/KG/DAY)
     Route: 048
  7. LORAZEPAM. [Concomitant]
     Active Substance: LORAZEPAM
     Indication: SEIZURE
     Dosage: 0.03 MG/KG/DOSE AT BEDTIME
     Route: 048
  8. VALPROIC ACID. [Suspect]
     Active Substance: VALPROIC ACID
     Indication: SEIZURE
     Dosage: VALPROIC ACID WAS INITIATED 20 MG/KG LOAD
     Route: 048
  9. LORAZEPAM. [Concomitant]
     Active Substance: LORAZEPAM
     Indication: ANXIETY
     Dosage: 2 MG EVERY 4?6 HOURS AS NEEDED FOR ANXIETY
     Route: 048
  10. CLONIDINE. [Suspect]
     Active Substance: CLONIDINE
     Indication: PRODUCT USED FOR UNKNOWN INDICATION
     Dosage: .2 MILLIGRAM DAILY; 0.2 MG AT BEDTIME
     Route: 065
  11. LORATADINE. [Interacting]
     Active Substance: LORATADINE
     Indication: SEIZURE
     Route: 048
  12. MELATONIN [Interacting]
     Active Substance: MELATONIN
     Indication: PRODUCT USED FOR UNKNOWN INDICATION
     Dosage: 3 MILLIGRAM DAILY; AT BEDTIME
     Route: 048
  13. LEVETIRACETAM. [Concomitant]
     Active Substance: LEVETIRACETAM
     Indication: SEIZURE
     Dosage: 2400 MILLIGRAM DAILY; 80 MG/KG/DAY
     Route: 048
  14. GLYCOPYRROLATE. [Concomitant]
     Active Substance: GLYCOPYRROLATE
     Indication: PRODUCT USED FOR UNKNOWN INDICATION
     Dosage: SCHEDULED AT 1 MG IN THE MORNING AND 1 MG AT BEDTIME AS NEEDED
     Route: 048
  15. BACLOFEN. [Concomitant]
     Active Substance: BACLOFEN
     Indication: PRODUCT USED FOR UNKNOWN INDICATION
     Dosage: 1051 MICROGRAM DAILY; BACLOFEN 1051 MCG/DAY BY PUMP
     Route: 065
  16. CLONAZEPAM. [Concomitant]
     Active Substance: CLONAZEPAM
     Indication: SEIZURE
     Dosage: .02 MG/KG DAILY; DIVIDED 3 TIMES A DAY
     Route: 065

REACTIONS (4)
  - Hypersomnia [Recovered/Resolved]
  - Bradycardia [Unknown]
  - Drug interaction [Recovered/Resolved]
  - Oxygen saturation decreased [Unknown]
